FAERS Safety Report 20123863 (Version 1)
Quarter: 2021Q4

REPORT INFORMATION
  Report Type: Spontaneous
  Country: US (occurrence: None)
  Receive Date: 20211129
  Receipt Date: 20211129
  Transmission Date: 20220303
  Serious: Yes (Life-Threatening, Hospitalization, Other)
  Sender: FDA-Public Use
  Company Number: US-ADIENNEP-2021AD000606

PATIENT
  Age: 39 Year
  Sex: Female

DRUGS (8)
  1. CYCLOPHOSPHAMIDE [Suspect]
     Active Substance: CYCLOPHOSPHAMIDE
     Indication: Allogenic stem cell transplantation
  2. FLUDARABINE [Suspect]
     Active Substance: FLUDARABINE PHOSPHATE
     Indication: Allogenic stem cell transplantation
  3. THIOTEPA [Suspect]
     Active Substance: THIOTEPA
     Indication: Allogenic stem cell transplantation
  4. TACROLIMUS [Suspect]
     Active Substance: TACROLIMUS
     Indication: Prophylaxis against graft versus host disease
  5. MYCOPHENOLATE MOFETIL [Suspect]
     Active Substance: MYCOPHENOLATE MOFETIL
     Indication: Prophylaxis against graft versus host disease
  6. ACYCLOVIR [Suspect]
     Active Substance: ACYCLOVIR
     Indication: Infection prophylaxis
  7. VORICONAZOLE [Suspect]
     Active Substance: VORICONAZOLE
     Indication: Infection prophylaxis
  8. LETERMOVIR [Suspect]
     Active Substance: LETERMOVIR
     Indication: Infection prophylaxis

REACTIONS (10)
  - Graft versus host disease in gastrointestinal tract [Recovered/Resolved]
  - Microangiopathy [Unknown]
  - Klebsiella bacteraemia [Unknown]
  - Mental disorder [Unknown]
  - Melaena [Unknown]
  - Intestinal perforation [Unknown]
  - Mucormycosis [Unknown]
  - Sepsis [Unknown]
  - Cerebral infarction [Unknown]
  - Haemodynamic instability [Unknown]
